FAERS Safety Report 21417049 (Version 2)
Quarter: 2022Q4

REPORT INFORMATION
  Report Type: Spontaneous
  Country: US (occurrence: US)
  Receive Date: 20221006
  Receipt Date: 20221007
  Transmission Date: 20230113
  Serious: Yes (Other)
  Sender: FDA-Public Use
  Company Number: US-PFIZER INC-202201204796

PATIENT
  Age: 76 Year
  Sex: Male

DRUGS (1)
  1. PAXLOVID [Suspect]
     Active Substance: NIRMATRELVIR\RITONAVIR
     Indication: COVID-19 treatment
     Dosage: UNK
     Dates: start: 20220913, end: 20220918

REACTIONS (7)
  - Liver injury [Unknown]
  - Chromaturia [Unknown]
  - Abdominal pain [Unknown]
  - Constipation [Unknown]
  - Peripheral swelling [Unknown]
  - Abdominal distension [Unknown]
  - Abdominal pain upper [Unknown]

NARRATIVE: CASE EVENT DATE: 20220901
